FAERS Safety Report 15986580 (Version 1)
Quarter: 2019Q1

REPORT INFORMATION
  Report Type: Spontaneous
  Country: SA (occurrence: SA)
  Receive Date: 20190220
  Receipt Date: 20190220
  Transmission Date: 20190418
  Serious: Yes (Life-Threatening, Hospitalization)
  Sender: FDA-Public Use
  Company Number: None

PATIENT
  Age: 51 Year
  Sex: Male

DRUGS (1)
  1. PIPERACILLIN-TAZOBACTAM (TAZOCIN) [Suspect]
     Active Substance: PIPERACILLIN SODIUM\TAZOBACTAM SODIUM

REACTIONS (6)
  - Oxygen saturation decreased [None]
  - Tachycardia [None]
  - Hypersensitivity [None]
  - Pruritus [None]
  - Hypotension [None]
  - Tachypnoea [None]
